FAERS Safety Report 20309364 (Version 1)
Quarter: 2022Q1

REPORT INFORMATION
  Report Type: Spontaneous
  Country: US (occurrence: US)
  Receive Date: 20220107
  Receipt Date: 20220107
  Transmission Date: 20220423
  Serious: Yes (Other)
  Sender: FDA-Public Use
  Company Number: US-MYLANLABS-2022M1001130

PATIENT
  Age: 70 Year
  Sex: Female

DRUGS (10)
  1. DOXORUBICIN [Suspect]
     Active Substance: DOXORUBICIN
     Indication: Pleomorphic liposarcoma
     Dosage: UNK UNK, CYCLE, RECEIVED 6 CYCLES WITH OLARATUMAB
     Route: 065
  2. DOXORUBICIN [Suspect]
     Active Substance: DOXORUBICIN
     Indication: Uterine cancer
  3. OLARATUMAB [Suspect]
     Active Substance: OLARATUMAB
     Indication: Pleomorphic liposarcoma
     Dosage: UNK, CYCLE, RECEIVED 6 CYCLES WITH DOXORUBICIN
     Route: 065
  4. OLARATUMAB [Suspect]
     Active Substance: OLARATUMAB
     Indication: Uterine cancer
     Dosage: UNK, MAINTENANCE THERAPY
     Route: 065
  5. ENTRECTINIB [Concomitant]
     Active Substance: ENTRECTINIB
     Indication: Pleomorphic liposarcoma
     Dosage: UNK UNK, CYCLE, RECEIVED 4 CYCLES
     Route: 065
  6. ENTRECTINIB [Concomitant]
     Active Substance: ENTRECTINIB
     Indication: Uterine cancer
  7. PAZOPANIB [Concomitant]
     Active Substance: PAZOPANIB
     Indication: Pleomorphic liposarcoma
     Dosage: UNK UNK, CYCLE
     Route: 065
  8. PAZOPANIB [Concomitant]
     Active Substance: PAZOPANIB
     Indication: Uterine cancer
  9. LAROTRECTINIB [Concomitant]
     Active Substance: LAROTRECTINIB
     Indication: Pleomorphic liposarcoma
     Dosage: UNK UNK, CYCLE
     Route: 065
  10. LAROTRECTINIB [Concomitant]
     Active Substance: LAROTRECTINIB
     Indication: Uterine cancer

REACTIONS (1)
  - Drug ineffective [Unknown]
